FAERS Safety Report 6938605-6 (Version None)
Quarter: 2010Q3

REPORT INFORMATION
  Report Type: 
  Country: None (occurrence: None)
  Receive Date: 20100824
  Receipt Date: 20100818
  Transmission Date: 20110219
  Serious: Yes (Hospitalization)
  Sender: FDA-Public Use
  Company Number: US-GILEAD-2010-0030932

PATIENT
  Sex: Male
  Weight: 92.616 kg

DRUGS (18)
  1. LETAIRIS [Suspect]
     Indication: PULMONARY ARTERIAL HYPERTENSION
     Route: 048
     Dates: start: 20080806
  2. VIAGRA [Concomitant]
  3. ASPIRIN [Concomitant]
  4. LASIX [Concomitant]
  5. ZOCOR [Concomitant]
  6. ALBUTEROL [Concomitant]
  7. ALLEGRA [Concomitant]
  8. FLONASE [Concomitant]
  9. MUCINEX [Concomitant]
  10. ACTOS [Concomitant]
  11. PRILOSEC [Concomitant]
  12. BENEFIBER [Concomitant]
  13. FIBER LAXATIVE [Concomitant]
  14. INDOCIN [Concomitant]
  15. PREMASOL [Concomitant]
  16. CENTRUM [Concomitant]
  17. VITAMIN B [Concomitant]
  18. CITRACAL [Concomitant]

REACTIONS (1)
  - MYOPATHY [None]
